FAERS Safety Report 4973394-6 (Version None)
Quarter: 2006Q2

REPORT INFORMATION
  Report Type: 
  Country: None (occurrence: None)
  Receive Date: 20060414
  Receipt Date: 20050404
  Transmission Date: 20061013
  Serious: Yes (Hospitalization)
  Sender: FDA-Public Use
  Company Number: US-MERCK-0511USA00228

PATIENT
  Age: 62 Year
  Sex: Male
  Weight: 75 kg

DRUGS (17)
  1. VIOXX [Suspect]
     Indication: SPINAL OSTEOARTHRITIS
     Route: 048
     Dates: start: 19991202, end: 20020809
  2. VIOXX [Suspect]
     Route: 048
     Dates: start: 19991202, end: 20020809
  3. PREVACID [Suspect]
     Route: 048
  4. CARDIZEM CD [Concomitant]
     Route: 048
  5. LISINOPRIL [Concomitant]
     Route: 048
  6. LIBRIUM [Concomitant]
     Route: 048
  7. LUDIOMIL [Concomitant]
     Route: 048
  8. NAVANE [Concomitant]
     Route: 048
  9. ZINC (UNSPECIFIED) [Concomitant]
     Route: 048
  10. AMANTADINE HYDROCHLORIDE [Concomitant]
     Route: 048
  11. HYTRIN [Concomitant]
     Route: 048
  12. MAXAIR [Concomitant]
     Route: 055
  13. PULMICORT [Concomitant]
     Route: 055
  14. PLAVIX [Concomitant]
     Route: 048
  15. FOLIC ACID [Concomitant]
     Route: 048
  16. NEURONTIN [Concomitant]
     Route: 048
  17. NEURONTIN [Concomitant]
     Route: 048

REACTIONS (58)
  - AGORAPHOBIA [None]
  - ALCOHOL POISONING [None]
  - ANAEMIA [None]
  - ANXIETY [None]
  - AORTIC VALVE DISEASE MIXED [None]
  - AORTIC VALVE SCLEROSIS [None]
  - ARTHRALGIA [None]
  - ASTHENIA [None]
  - BACK PAIN [None]
  - BLOOD SODIUM DECREASED [None]
  - BUNDLE BRANCH BLOCK LEFT [None]
  - BURNING SENSATION [None]
  - CEREBRAL INFARCTION [None]
  - CEREBROVASCULAR ACCIDENT [None]
  - CONFUSIONAL STATE [None]
  - CONSTIPATION [None]
  - CONTUSION [None]
  - COUGH [None]
  - DEMYELINATION [None]
  - DEPRESSION [None]
  - DIARRHOEA [None]
  - DYSPEPSIA [None]
  - DYSPNOEA [None]
  - ENTEROCOLITIS [None]
  - FALL [None]
  - FATIGUE [None]
  - FRACTURE [None]
  - GASTROINTESTINAL HAEMORRHAGE [None]
  - GASTROOESOPHAGEAL REFLUX DISEASE [None]
  - GIARDIASIS [None]
  - HEAD INJURY [None]
  - HEADACHE [None]
  - HERNIA REPAIR [None]
  - HYPOAESTHESIA [None]
  - HYPONATRAEMIA [None]
  - HYPOTENSION [None]
  - IRRITABLE BOWEL SYNDROME [None]
  - MUSCLE SPASMS [None]
  - MUSCULOSKELETAL CHEST PAIN [None]
  - NAUSEA [None]
  - ODYNOPHAGIA [None]
  - OEDEMA PERIPHERAL [None]
  - PARAESTHESIA [None]
  - PERIPHERAL SENSORY NEUROPATHY [None]
  - PNEUMONIA [None]
  - POLLAKIURIA [None]
  - RADICULOPATHY [None]
  - RASH [None]
  - RASH MACULAR [None]
  - SHOULDER PAIN [None]
  - SKIN LACERATION [None]
  - STOMACH SCAN ABNORMAL [None]
  - SUPRAVENTRICULAR EXTRASYSTOLES [None]
  - TRANSIENT ISCHAEMIC ATTACK [None]
  - UMBILICAL HERNIA [None]
  - VENTRICULAR EXTRASYSTOLES [None]
  - VENTRICULAR HYPERTROPHY [None]
  - WOUND [None]
